FAERS Safety Report 7050485-X (Version None)
Quarter: 2010Q4

REPORT INFORMATION
  Report Type: 
  Country: None (occurrence: None)
  Receive Date: 20101018
  Receipt Date: 20101004
  Transmission Date: 20110411
  Serious: Yes (Other)
  Sender: FDA-Public Use
  Company Number: GB-ELI_LILLY_AND_COMPANY-GB201008003615

PATIENT
  Sex: Female
  Weight: 39.002 kg

DRUGS (2)
  1. DULOXETINE HYDROCHLORIDE [Suspect]
     Dosage: 30 MG, UNKNOWN
     Route: 065
  2. DULOXETINE HYDROCHLORIDE [Suspect]
     Dosage: 60 MG, UNK
     Dates: start: 20100927

REACTIONS (3)
  - ANXIETY [None]
  - DECREASED APPETITE [None]
  - PANIC ATTACK [None]
